FAERS Safety Report 8119319-6 (Version None)
Quarter: 2012Q1

REPORT INFORMATION
  Report Type: 
  Country: None (occurrence: None)
  Receive Date: 20120203
  Receipt Date: 20120130
  Transmission Date: 20120608
  Serious: Yes (Hospitalization)
  Sender: FDA-Public Use
  Company Number: 2009SP028413

PATIENT
  Age: 23 Year
  Sex: Female
  Weight: 58.9676 kg

DRUGS (5)
  1. OXYCONTIN [Suspect]
     Indication: HEADACHE
  2. DILAUDID [Suspect]
     Indication: HEADACHE
  3. MORPHINE [Suspect]
     Indication: HEADACHE
  4. NUVARING [Suspect]
     Indication: CONTRACEPTION
     Dates: start: 20070101, end: 20070901
  5. OXYCODONE HCL [Suspect]
     Indication: HEADACHE

REACTIONS (20)
  - DIPLOPIA [None]
  - ANTIPHOSPHOLIPID ANTIBODIES POSITIVE [None]
  - CEREBRAL VENOUS THROMBOSIS [None]
  - CEREBRAL THROMBOSIS [None]
  - SUPERIOR SAGITTAL SINUS THROMBOSIS [None]
  - CEREBROVASCULAR ACCIDENT [None]
  - VISUAL FIELD DEFECT [None]
  - NO THERAPEUTIC RESPONSE [None]
  - STRESS [None]
  - HYPERCOAGULATION [None]
  - ELECTROCARDIOGRAM T WAVE INVERSION [None]
  - ABORTION SPONTANEOUS [None]
  - MUSCLE SPASMS [None]
  - MATERNAL EXPOSURE DURING PREGNANCY [None]
  - INTRACRANIAL VENOUS SINUS THROMBOSIS [None]
  - CONSTIPATION [None]
  - HUMAN PAPILLOMA VIRUS TEST POSITIVE [None]
  - HYPERTRICHOSIS [None]
  - PNEUMONIA BACTERIAL [None]
  - PLEURAL EFFUSION [None]
